FAERS Safety Report 7587350-5 (Version None)
Quarter: 2011Q3

REPORT INFORMATION
  Report Type: 
  Country: None (occurrence: None)
  Receive Date: 20110701
  Receipt Date: 20110622
  Transmission Date: 20111222
  Serious: Yes (Hospitalization, Disabling)
  Sender: FDA-Public Use
  Company Number: BR-ASTRAZENECA-2011SE38266

PATIENT
  Age: 69 Year
  Sex: Female
  Weight: 78 kg

DRUGS (6)
  1. ZESTRIL [Suspect]
     Indication: HYPERTENSION
     Route: 048
     Dates: start: 20060101
  2. CRESTOR [Suspect]
     Indication: HYPERTRIGLYCERIDAEMIA
     Route: 048
     Dates: start: 20090101
  3. ATENOLOL [Suspect]
     Indication: HYPERTENSION
     Dosage: MEDLEY
     Route: 048
     Dates: start: 20010101
  4. PRAVASTATIN [Suspect]
     Indication: HYPERTRIGLYCERIDAEMIA
     Route: 048
     Dates: start: 20060101, end: 20090101
  5. OMEPRAZOLE [Concomitant]
     Indication: PROPHYLAXIS
     Route: 048
     Dates: start: 20090101
  6. XALATAN [Concomitant]
     Indication: GLAUCOMA
     Route: 031
     Dates: start: 20010101

REACTIONS (6)
  - OSTEOPOROSIS [None]
  - FALL [None]
  - BLOOD PRESSURE INADEQUATELY CONTROLLED [None]
  - FEMUR FRACTURE [None]
  - DEPRESSION [None]
  - HYPERTRIGLYCERIDAEMIA [None]
